FAERS Safety Report 9228577 (Version 3)
Quarter: 2013Q3

REPORT INFORMATION
  Report Type: Report from Study
  Country: CA (occurrence: CA)
  Receive Date: 20130412
  Receipt Date: 20130702
  Transmission Date: 20140515
  Serious: Yes (Other)
  Sender: FDA-Public Use
  Company Number: CA-ROCHE-1212791

PATIENT
  Age: 64 Year
  Sex: Female
  Weight: 69.9 kg

DRUGS (10)
  1. RITUXAN [Suspect]
     Indication: TYPE 1 DIABETES MELLITUS
     Route: 042
     Dates: start: 20121203
  2. RITUXAN [Suspect]
     Indication: RHEUMATOID ARTHRITIS
  3. RITUXAN [Suspect]
     Indication: OFF LABEL USE
  4. METHYLPREDNISOLONE [Suspect]
     Indication: PREMEDICATION
     Route: 042
     Dates: start: 20121203
  5. DIPHENHYDRAMINE HYDROCHLORIDE [Suspect]
     Indication: PREMEDICATION
     Route: 048
     Dates: start: 20121203
  6. ESTROGEL [Concomitant]
  7. PROVERA [Concomitant]
  8. ATIVAN [Concomitant]
     Route: 065
  9. FOLIC ACID [Concomitant]
  10. ACETAMINOPHEN [Concomitant]
     Route: 048
     Dates: start: 20121203

REACTIONS (6)
  - Hypertension [Not Recovered/Not Resolved]
  - Dyslipidaemia [Not Recovered/Not Resolved]
  - Blood glucose increased [Recovered/Resolved]
  - Drug ineffective [Unknown]
  - Sedation [Unknown]
  - Corticosteroid binding globulin increased [Unknown]
